FAERS Safety Report 19064549 (Version 1)
Quarter: 2021Q1

REPORT INFORMATION
  Report Type: Spontaneous
  Country: US (occurrence: US)
  Receive Date: 20210326
  Receipt Date: 20210326
  Transmission Date: 20210420
  Serious: No
  Sender: FDA-Public Use
  Company Number: US-JACOBUS PHARMACEUTICAL COMPANY, INC.-2108496

PATIENT
  Age: 27 Year
  Sex: Female

DRUGS (13)
  1. RUZURGI [Suspect]
     Active Substance: AMIFAMPRIDINE
     Indication: MYASTHENIC SYNDROME
     Route: 048
     Dates: start: 20210112
  2. HYDROXYZINE [Concomitant]
     Active Substance: HYDROXYZINE HYDROCHLORIDE
  3. HYDRALAZINE [Concomitant]
     Active Substance: HYDRALAZINE HYDROCHLORIDE
  4. MULTIVITAMIN [Concomitant]
     Active Substance: VITAMINS
  5. PANTOPRAZOLE SODIUM. [Concomitant]
     Active Substance: PANTOPRAZOLE SODIUM
  6. DULOXETINE. [Concomitant]
     Active Substance: DULOXETINE
  7. CELEBREX [Concomitant]
     Active Substance: CELECOXIB
  8. DAYQUIL COLD AND FLU [Concomitant]
     Active Substance: ACETAMINOPHEN\DEXTROMETHORPHAN HYDROBROMIDE\PHENYLEPHRINE HYDROCHLORIDE
  9. METHYLPHENIDATE. [Concomitant]
     Active Substance: METHYLPHENIDATE
  10. ERGOCALCIFEROL. [Concomitant]
     Active Substance: ERGOCALCIFEROL
  11. DIAZEPAM. [Concomitant]
     Active Substance: DIAZEPAM
  12. PYRIDOSTIGMINE BROMIDE. [Concomitant]
     Active Substance: PYRIDOSTIGMINE BROMIDE
  13. BIOTIN [Concomitant]
     Active Substance: BIOTIN

REACTIONS (2)
  - Headache [Unknown]
  - Muscle spasms [Unknown]
